FAERS Safety Report 6066857-6 (Version None)
Quarter: 2009Q1

REPORT INFORMATION
  Report Type: 
  Country: None (occurrence: None)
  Receive Date: 20090205
  Receipt Date: 20090202
  Transmission Date: 20090719
  Serious: Yes (Hospitalization)
  Sender: FDA-Public Use
  Company Number: FR-BRISTOL-MYERS SQUIBB COMPANY-14491203

PATIENT
  Age: 84 Year
  Sex: Female

DRUGS (14)
  1. COUMADIN [Suspect]
     Dates: start: 20090108, end: 20090111
  2. LASILIX [Concomitant]
  3. ZESTRIL [Concomitant]
  4. SPIRONOLACTONE [Concomitant]
  5. CRESTOR [Concomitant]
  6. NITROGLYCERIN [Concomitant]
  7. CORDARONE [Concomitant]
     Dosage: 5 OUT OF 7 DAYS
  8. SEROPRAM [Concomitant]
  9. ZOPICLONE [Concomitant]
  10. DIALGIREX [Concomitant]
  11. CALCIPARINE [Concomitant]
     Dates: start: 20090104, end: 20090112
  12. HEPARIN [Concomitant]
     Dosage: HEPARINOTHERAPY WITH ELECTRIC SYNRINGE
     Dates: start: 20090102, end: 20090104
  13. ORGARAN [Concomitant]
     Dates: start: 20090112
  14. PREVISCAN [Concomitant]

REACTIONS (4)
  - CARDIAC FAILURE [None]
  - DEEP VEIN THROMBOSIS [None]
  - PULMONARY EMBOLISM [None]
  - THROMBOCYTOPENIA [None]
